FAERS Safety Report 6413700-9 (Version None)
Quarter: 2009Q4

REPORT INFORMATION
  Report Type: 
  Country: None (occurrence: None)
  Receive Date: 20091026
  Receipt Date: 20090923
  Transmission Date: 20100525
  Serious: No
  Sender: FDA-Public Use
  Company Number: US-BAYER-200934215NA

PATIENT
  Sex: Female

DRUGS (2)
  1. MIRENA [Suspect]
     Indication: DRUG USE FOR UNKNOWN INDICATION
     Dosage: CONTINUOUS DELIVERY
     Route: 015
     Dates: start: 20090801
  2. ANTIBIOTIC [Concomitant]
     Indication: ARTHROPOD BITE

REACTIONS (4)
  - ARTHROPOD BITE [None]
  - FOOD CRAVING [None]
  - MALAISE [None]
  - UNEVALUABLE EVENT [None]
